FAERS Safety Report 9441659 (Version 2)
Quarter: 2014Q1

REPORT INFORMATION
  Report Type: Report from Study
  Country: US (occurrence: US)
  Receive Date: 20130806
  Receipt Date: 20140103
  Transmission Date: 20141002
  Serious: Yes (Hospitalization)
  Sender: FDA-Public Use
  Company Number: US-BIOGENIDEC-2013BI070254

PATIENT
  Age: 48 Year
  Sex: Female
  Weight: 72 kg

DRUGS (18)
  1. BG00012 [Suspect]
     Indication: MULTIPLE SCLEROSIS
     Dates: start: 20100312
  2. COLACE [Concomitant]
  3. IBUPROFENE [Concomitant]
  4. IBUPROFENE [Concomitant]
  5. IBUPROFENE [Concomitant]
     Route: 048
     Dates: start: 20130522, end: 20130610
  6. METAMUCIL [Concomitant]
     Route: 048
  7. PERCOCET [Concomitant]
  8. TYLENOL [Concomitant]
     Indication: HEADACHE
     Route: 048
     Dates: start: 20100311, end: 20100313
  9. TYLENOL [Concomitant]
     Indication: HEADACHE
     Route: 048
     Dates: start: 20120304, end: 20120305
  10. TYLENOL [Concomitant]
     Indication: HEADACHE
     Route: 048
     Dates: start: 20130124, end: 20130204
  11. CIPROFLOXACINE [Concomitant]
     Indication: URINARY TRACT INFECTION
     Route: 048
     Dates: start: 20100527, end: 20100531
  12. BENADRYL [Concomitant]
     Indication: NASOPHARYNGITIS
     Route: 048
     Dates: start: 20110119, end: 20110202
  13. BENADRYL [Concomitant]
     Indication: NASOPHARYNGITIS
     Dates: start: 20110923, end: 20110924
  14. CEFPROZIL [Concomitant]
     Indication: SINUSITIS
     Route: 048
     Dates: start: 20110818, end: 20110828
  15. RUBITRACINE [Concomitant]
     Indication: NASOPHARYNGITIS
     Route: 048
     Dates: start: 20110923, end: 20110924
  16. ZYRTEC [Concomitant]
     Indication: MIDDLE EAR EFFUSION
     Route: 048
     Dates: start: 20130206, end: 20130227
  17. GABAPENTINE [Concomitant]
     Indication: SINUS HEADACHE
     Route: 048
     Dates: start: 20130204, end: 20130227
  18. GABAPENTINE [Concomitant]
     Indication: MIDDLE EAR EFFUSION
     Route: 048
     Dates: start: 20130204, end: 20130227

REACTIONS (1)
  - Adenomyosis [Recovered/Resolved]
